FAERS Safety Report 8293477-5 (Version None)
Quarter: 2012Q2

REPORT INFORMATION
  Report Type: 
  Country: None (occurrence: None)
  Receive Date: 20120417
  Receipt Date: 20120404
  Transmission Date: 20120825
  Serious: Yes (Hospitalization)
  Sender: FDA-Public Use
  Company Number: US-MYLANLABS-2012S1007493

PATIENT
  Age: 62 Year
  Sex: Male

DRUGS (6)
  1. ENALAPRIL MALEATE [Concomitant]
     Dosage: 2.5MG DAILY
     Route: 065
  2. RANOLAZINE [Interacting]
     Indication: MYOCARDIAL ISCHAEMIA
     Route: 065
  3. DILTIAZEM HCL [Interacting]
     Dosage: 240MG DAILY
     Route: 065
  4. PREDNISONE [Concomitant]
     Route: 065
  5. RANOLAZINE [Interacting]
     Route: 065
  6. TACROLIMUS [Suspect]
     Route: 065

REACTIONS (4)
  - SINUS BRADYCARDIA [None]
  - RENAL FAILURE ACUTE [None]
  - DRUG INTERACTION [None]
  - IMMUNOSUPPRESSANT DRUG LEVEL INCREASED [None]
